FAERS Safety Report 9618005 (Version 4)
Quarter: 2013Q4

REPORT INFORMATION
  Report Type: Report from Study
  Country: US (occurrence: US)
  Receive Date: 20131011
  Receipt Date: 20131127
  Transmission Date: 20140711
  Serious: Yes (Hospitalization)
  Sender: FDA-Public Use
  Company Number: US-ACTELION-A-US2013-82959

PATIENT
  Age: 58 Year
  Sex: Female

DRUGS (4)
  1. TRACLEER [Suspect]
     Indication: PULMONARY HYPERTENSION
     Dosage: UNK
     Route: 048
  2. REMODULIN [Suspect]
  3. ADCIRCA [Concomitant]
     Dosage: UNK
     Route: 048
  4. COUMADIN [Concomitant]

REACTIONS (6)
  - Lung disorder [Unknown]
  - Transplant evaluation [Unknown]
  - Cardiac disorder [Unknown]
  - Device leakage [Unknown]
  - Dyspnoea [Unknown]
  - Malaise [Unknown]
